FAERS Safety Report 9474532 (Version 1)
Quarter: 2013Q3

REPORT INFORMATION
  Report Type: Spontaneous
  Country: US (occurrence: US)
  Receive Date: 20130823
  Receipt Date: 20130823
  Transmission Date: 20140515
  Serious: Yes (Other)
  Sender: FDA-Public Use
  Company Number: US-BAXTER-2013BAX032018

PATIENT
  Sex: Female
  Weight: 125.3 kg

DRUGS (1)
  1. GAMMAGARD LIQUID [Suspect]
     Indication: PRODUCT USED FOR UNKNOWN INDICATION

REACTIONS (4)
  - Anuria [Unknown]
  - Infusion related reaction [Unknown]
  - Chest discomfort [Unknown]
  - Infrequent bowel movements [Unknown]
